FAERS Safety Report 12896268 (Version 1)
Quarter: 2016Q4

REPORT INFORMATION
  Report Type: Spontaneous
  Country: BR (occurrence: BR)
  Receive Date: 20161031
  Receipt Date: 20161031
  Transmission Date: 20170207
  Serious: Yes (Death)
  Sender: FDA-Public Use
  Company Number: BR-TORRENT-00003640

PATIENT
  Sex: Male

DRUGS (5)
  1. MENELAT [Suspect]
     Active Substance: MIRTAZAPINE
     Indication: PARKINSON^S DISEASE
     Dosage: ONCE DAILY/ ORAL
     Route: 048
     Dates: start: 201606, end: 201606
  2. KITAPEN [Concomitant]
     Active Substance: QUETIAPINE FUMARATE
     Indication: PRODUCT USED FOR UNKNOWN INDICATION
     Dosage: NUMBER OF UNITS IN INTERVAL IS UNKNOWN/ ORAL
     Route: 048
  3. ESPRAN [Suspect]
     Active Substance: ESCITALOPRAM OXALATE
     Indication: PARKINSON^S DISEASE
     Dosage: ONCE DAILY/ ORAL
     Route: 048
     Dates: start: 2012, end: 201606
  4. CLOMENAC [Concomitant]
     Indication: PARKINSON^S DISEASE
     Dosage: NUMBER OF UNITS IN INTERVAL IS UNKNOWN/ ORAL
     Route: 048
     Dates: end: 201606
  5. PROLOPA [Concomitant]
     Active Substance: BENSERAZIDE\LEVODOPA
     Indication: PRODUCT USED FOR UNKNOWN INDICATION
     Dosage: UNK/ ORAL
     Route: 048

REACTIONS (4)
  - Off label use [Recovered/Resolved]
  - Parkinson^s disease [Fatal]
  - Disease progression [Fatal]
  - Off label use [Recovered/Resolved]

NARRATIVE: CASE EVENT DATE: 2012
